FAERS Safety Report 11284552 (Version 1)
Quarter: 2015Q3

REPORT INFORMATION
  Report Type: Spontaneous
  Country: US (occurrence: US)
  Receive Date: 20150720
  Receipt Date: 20150720
  Transmission Date: 20151125
  Serious: No
  Sender: FDA-Public Use
  Company Number: US-TAKEDA-2014TUS013345

PATIENT
  Age: 56 Year
  Sex: Female
  Weight: 79 kg

DRUGS (15)
  1. AMLODIPINE [Concomitant]
     Active Substance: AMLODIPINE BESYLATE
     Indication: HYPERTENSION
     Dosage: UNK
     Route: 048
     Dates: start: 201409
  2. ENTOCORT [Concomitant]
     Active Substance: BUDESONIDE
     Dosage: UNK, DURATION: 2-3 MONTHS
     Route: 048
     Dates: start: 201409, end: 20141201
  3. BUPROPION. [Concomitant]
     Active Substance: BUPROPION
     Indication: DEPRESSION
     Dosage: UNK
     Route: 048
  4. CETRIZINE [Concomitant]
     Active Substance: CETIRIZINE HYDROCHLORIDE
     Indication: COUGH
     Dosage: UNK
     Route: 048
     Dates: start: 201409
  5. MULTIVITAMIN                       /00097801/ [Concomitant]
     Active Substance: VITAMINS
     Dosage: UNK
     Route: 048
  6. BIFERARX [Concomitant]
     Active Substance: CYANOCOBALAMIN\FOLIC ACID\HEME IRON POLYPEPTIDE\IRON DEXTRAN
     Dosage: UNK
     Route: 048
  7. SIMVASTATIN. [Concomitant]
     Active Substance: SIMVASTATIN
     Indication: BLOOD CHOLESTEROL INCREASED
     Dosage: UNK
     Route: 048
  8. ENTYVIO [Suspect]
     Active Substance: VEDOLIZUMAB
     Dosage: 300 MG, 4.8 ML STERILE H2O IN 250 ML NS, SECOND DOSE
     Route: 042
     Dates: start: 20141003, end: 20141003
  9. BIOTIN [Concomitant]
     Active Substance: BIOTIN
     Dosage: UNK
     Route: 048
  10. ENTYVIO [Suspect]
     Active Substance: VEDOLIZUMAB
     Dosage: 300 MG, 4.8 ML STERILE H2O IN 250 ML NS, THIRD DOSE
     Route: 042
     Dates: start: 20141106
  11. ZITHROMAX [Concomitant]
     Active Substance: AZITHROMYCIN DIHYDRATE
     Indication: COUGH
     Dosage: UNK
     Route: 048
     Dates: start: 201409
  12. LISINOPRIL. [Concomitant]
     Active Substance: LISINOPRIL
     Indication: HYPERTENSION
     Dosage: UNK, DURATION: 2-3 WEEKS
     Route: 048
     Dates: start: 20140827, end: 201409
  13. ENTYVIO [Suspect]
     Active Substance: VEDOLIZUMAB
     Indication: COLITIS ULCERATIVE
     Dosage: 300 MG, 4.8 ML STERILE H2O IN 250 ML NS, FIRST DOSE
     Route: 042
     Dates: start: 20140926, end: 20140926
  14. MERCAPTOPURINE. [Concomitant]
     Active Substance: MERCAPTOPURINE
     Indication: COLITIS ULCERATIVE
     Dosage: 50 MG, QD, STARTING
     Route: 048
  15. LORATADINE. [Concomitant]
     Active Substance: LORATADINE
     Indication: COUGH
     Dosage: UNK
     Route: 048
     Dates: start: 201409

REACTIONS (3)
  - Drug ineffective [Not Recovered/Not Resolved]
  - Alopecia [Not Recovered/Not Resolved]
  - Joint swelling [Not Recovered/Not Resolved]

NARRATIVE: CASE EVENT DATE: 201410
